FAERS Safety Report 5015681-1 (Version None)
Quarter: 2006Q2

REPORT INFORMATION
  Report Type: 
  Country: None (occurrence: None)
  Receive Date: 20060601
  Receipt Date: 20060523
  Transmission Date: 20061013
  Serious: Yes (Other)
  Sender: FDA-Public Use
  Company Number: JP-JPN-A200601687

PATIENT
  Age: 77 Year
  Sex: Female

DRUGS (8)
  1. VALTREX [Suspect]
     Indication: HERPES ZOSTER
     Dosage: 500MG PER DAY
     Route: 048
     Dates: start: 20060520, end: 20060523
  2. MICARDIS [Concomitant]
     Route: 048
  3. ADALAT [Concomitant]
     Route: 048
  4. LASIX [Concomitant]
     Route: 048
  5. ARGAMATE [Concomitant]
     Route: 048
  6. SHINLUCK [Concomitant]
     Route: 048
  7. LOBU [Concomitant]
     Route: 048
  8. ARASENA-A [Concomitant]
     Route: 061

REACTIONS (3)
  - DIFFICULTY IN WALKING [None]
  - HALLUCINATION [None]
  - MALAISE [None]
